FAERS Safety Report 4428190-5 (Version None)
Quarter: 2004Q3

REPORT INFORMATION
  Report Type: 
  Country: None (occurrence: None)
  Receive Date: 20040726
  Receipt Date: 20040422
  Transmission Date: 20050211
  Serious: No
  Sender: FDA-Public Use
  Company Number: USA040465726

PATIENT
  Age: 50 Year
  Sex: Female

DRUGS (7)
  1. FORTEO [Suspect]
     Indication: OSTEOPOROSIS
     Dates: start: 20031001
  2. SKELAKIN(METAXALONE) [Concomitant]
  3. CALCIUM [Concomitant]
  4. MAGNESIUM [Concomitant]
  5. VITAMIN D [Concomitant]
  6. SEVERAL VITAMINS [Concomitant]
  7. MINERAL NOS [Concomitant]

REACTIONS (3)
  - ABDOMINAL PAIN [None]
  - INJECTION SITE ERYTHEMA [None]
  - MUSCLE CRAMP [None]
